FAERS Safety Report 9553847 (Version 1)
Quarter: 2013Q3

REPORT INFORMATION
  Report Type: Spontaneous
  Country: US (occurrence: None)
  Receive Date: 20130913
  Receipt Date: 20130913
  Transmission Date: 20140515
  Serious: Yes (Other)
  Sender: FDA-Public Use
  Company Number: 1000045557

PATIENT
  Age: 61 Year
  Sex: Male

DRUGS (16)
  1. DALIRESP [Suspect]
     Indication: CHRONIC OBSTRUCTIVE PULMONARY DISEASE
     Dosage: (500 MCG, 1 IN  1 D)
     Route: 048
     Dates: start: 20121030, end: 201212
  2. SPIRIVA (TIOTROPIUM BROMIDE) (TIOTROPIUM BROMIDE) [Concomitant]
  3. SYMBICORT (BUDESONIDE W/FORMOTEROL FUMARATE) (BUDESONIDE W/FORMOTEROL FUMARATE) [Concomitant]
  4. CLARITIN (LORATADINE) [Concomitant]
  5. HYDRALAZINE [Concomitant]
  6. FUROSEMIDE [Concomitant]
  7. THEOPHYLLINE [Concomitant]
  8. ALBUTEROL SULFATE (SALBUTAMOL SULFATE) (SALBUTAMOL SULFATE) [Concomitant]
  9. SINGULAIR [Concomitant]
  10. MUCINEX DM [Concomitant]
  11. CARDIZEM (DILTIAZEM) [Concomitant]
  12. ASPIRIN (ACETYLSALICYLIC ACID) [Concomitant]
  13. VENTOLIN HFA (SALBUTAMOL SULFATE) [Concomitant]
  14. PRAVACHOL (PRAVASTATIN SODIUM) [Concomitant]
  15. XANAX (ALPRAZOLAM) [Concomitant]
  16. PREDNISONE [Concomitant]

REACTIONS (5)
  - Suicidal ideation [None]
  - Depression [None]
  - Asthenia [None]
  - Fatigue [None]
  - Decreased interest [None]
